FAERS Safety Report 8278056-8 (Version None)
Quarter: 2012Q2

REPORT INFORMATION
  Report Type: 
  Country: None (occurrence: None)
  Receive Date: 20120412
  Receipt Date: 20120411
  Transmission Date: 20120825
  Serious: Yes (Hospitalization)
  Sender: FDA-Public Use
  Company Number: IT-BAYER-2012-035228

PATIENT
  Age: 54 Year
  Sex: Female

DRUGS (3)
  1. ASPIRIN [Suspect]
     Indication: PROPHYLAXIS
     Dosage: 100 MG, QD
     Route: 048
     Dates: start: 20100101, end: 20120325
  2. ATENOLOL [Concomitant]
     Dosage: DAILY DOSE 1 DF
  3. LEVOTHYROXINE SODIUM [Concomitant]
     Dosage: DAILY DOSE 50 ?G
     Route: 048

REACTIONS (3)
  - GASTROINTESTINAL TRACT ADENOMA [None]
  - RECTAL HAEMORRHAGE [None]
  - HAEMORRHOIDS [None]
